FAERS Safety Report 5261007-8 (Version None)
Quarter: 2007Q1

REPORT INFORMATION
  Report Type: 
  Country: None (occurrence: None)
  Receive Date: 20070306
  Receipt Date: 20070221
  Transmission Date: 20070707
  Serious: Yes (Life-Threatening)
  Sender: FDA-Public Use
  Company Number: 2007RR-05969

PATIENT
  Age: 70 Year
  Sex: Male

DRUGS (2)
  1. IBUPROFEN [Suspect]
     Indication: BACK PAIN
     Dosage: 600 MG, TID
  2. TORASEMIDA [Concomitant]

REACTIONS (4)
  - DYSPNOEA PAROXYSMAL NOCTURNAL [None]
  - HYPERTENSIVE EMERGENCY [None]
  - PULMONARY OEDEMA [None]
  - SINUS TACHYCARDIA [None]
